FAERS Safety Report 4582353-7 (Version None)
Quarter: 2005Q1

REPORT INFORMATION
  Report Type: 
  Country: None (occurrence: None)
  Receive Date: 20050118
  Receipt Date: 20041018
  Transmission Date: 20050727
  Serious: Yes (Hospitalization)
  Sender: FDA-Public Use
  Company Number: 383767

PATIENT
  Age: 4 Year
  Sex: 0

DRUGS (2)
  1. ROCEPHIN [Suspect]
     Indication: EAR INFECTION
     Dosage: INTRAVENOUS
     Route: 042
     Dates: start: 20041015, end: 20041015
  2. ROCEPHIN [Suspect]
     Indication: PYREXIA
     Dosage: INTRAVENOUS
     Route: 042
     Dates: start: 20041015, end: 20041015

REACTIONS (1)
  - GRAND MAL CONVULSION [None]
